FAERS Safety Report 19706781 (Version 1)
Quarter: 2021Q3

REPORT INFORMATION
  Report Type: Spontaneous
  Country: DE (occurrence: DE)
  Receive Date: 20210817
  Receipt Date: 20210817
  Transmission Date: 20211014
  Serious: Yes (Hospitalization)
  Sender: FDA-Public Use
  Company Number: DE-TEVA-2021-DE-1941781

PATIENT
  Age: 45 Year
  Sex: Female
  Weight: 80 kg

DRUGS (10)
  1. HUMALOG 100EINHEITEN/ML INJEKTIONSLOSUNG [Concomitant]
     Dosage: 12 DOSAGE FORMS DAILY; 100 | 1 IU / ML, 6?6?0?0
     Route: 058
  2. CANDESARTAN COMP. AUROBINDO 16MG/12,5MG [Concomitant]
     Dosage: 2 DOSAGE FORMS DAILY; 16|12.5 MG, 1?0?1?0
     Route: 048
  3. ACETYLSALICYLSAURE [Suspect]
     Active Substance: ASPIRIN
     Dosage: 100 MILLIGRAM DAILY;  0?1?0?0,
     Route: 048
  4. METOPROLOL. [Concomitant]
     Active Substance: METOPROLOL
     Dosage: 95 MILLIGRAM DAILY; 1?0?1?0
     Route: 048
  5. CLOPIDOGREL [Suspect]
     Active Substance: CLOPIDOGREL BISULFATE
     Dosage: 2 DOSAGE FORMS DAILY; 75 MG, 2?0?0?0
     Route: 048
  6. VICTOZA [Concomitant]
     Active Substance: LIRAGLUTIDE
     Dosage: 1 DOSAGE FORMS DAILY; 18|3 MG/ML, 1?0?0?0
     Route: 058
  7. LEVEMIR FLEXPEN 300E. 100E./ML [Concomitant]
     Dosage: 12 DOSAGE FORMS DAILY; 300|3 IE/ML, 0?0?0?12
     Route: 058
  8. AMLODIPIN [Concomitant]
     Active Substance: AMLODIPINE BESYLATE
     Dosage: 10 MILLIGRAM DAILY; 5 MG, 1?0?1?0
     Route: 048
  9. ATORVASTATIN [Concomitant]
     Active Substance: ATORVASTATIN
     Dosage: 80 MILLIGRAM DAILY;  0?0?1?0
     Route: 048
  10. MOXONIDIN [Concomitant]
     Active Substance: MOXONIDINE
     Dosage: .4 MILLIGRAM DAILY; 1?0?1?0
     Route: 048

REACTIONS (3)
  - Malaise [Not Recovered/Not Resolved]
  - Cerebrovascular accident [Not Recovered/Not Resolved]
  - Presyncope [Not Recovered/Not Resolved]
